FAERS Safety Report 7759511 (Version 3)
Quarter: 2014Q3

REPORT INFORMATION
  Report Type: Spontaneous
  Country: US (occurrence: US)
  Receive Date: 20110113
  Receipt Date: 20140901
  Transmission Date: 20150326
  Serious: Yes (Other)
  Sender: FDA-Public Use
  Company Number: US-ROCHE-752626

PATIENT
  Age: 45 Year
  Sex: Female
  Weight: 64.4 kg

DRUGS (4)
  1. IBUPROFEN. [Concomitant]
     Active Substance: IBUPROFEN
  2. ACCUTANE [Suspect]
     Active Substance: ISOTRETINOIN
     Indication: ACNE CYSTIC
     Route: 048
     Dates: start: 1997, end: 199708
  3. ACCUTANE [Suspect]
     Active Substance: ISOTRETINOIN
     Dosage: 40 MG - 80 MG.
     Route: 048
     Dates: start: 20021003, end: 20030115
  4. ZOCOR [Concomitant]
     Active Substance: SIMVASTATIN

REACTIONS (9)
  - Crohn^s disease [Unknown]
  - Lip dry [Unknown]
  - Blood cholesterol increased [Unknown]
  - Colitis [Unknown]
  - Haemorrhoids [Unknown]
  - Arthropathy [Unknown]
  - Inflammatory bowel disease [Unknown]
  - Irritable bowel syndrome [Unknown]
  - Arthritis [Unknown]

NARRATIVE: CASE EVENT DATE: 2001
